FAERS Safety Report 4835459-9 (Version None)
Quarter: 2005Q4

REPORT INFORMATION
  Report Type: 
  Country: None (occurrence: None)
  Receive Date: 20051122
  Receipt Date: 20051122
  Transmission Date: 20060501
  Serious: Yes (Hospitalization, Other)
  Sender: FDA-Public Use
  Company Number: None

PATIENT
  Age: 84 Year
  Sex: Female
  Weight: 56 kg

DRUGS (1)
  1. AMIODARONE  200 MG [Suspect]
     Indication: ATRIAL FIBRILLATION
     Dosage: 200 MG DAILY PO   ESTIMATE AT LEAST 2 YEARS
     Route: 048

REACTIONS (13)
  - ASTHENIA [None]
  - DYSPNOEA [None]
  - FATIGUE [None]
  - HERPES ZOSTER [None]
  - HILAR LYMPHADENOPATHY [None]
  - HYPOXIA [None]
  - INTERSTITIAL LUNG DISEASE [None]
  - LUNG INFILTRATION [None]
  - PLEURAL EFFUSION [None]
  - PULMONARY FIBROSIS [None]
  - PULMONARY OEDEMA [None]
  - PYREXIA [None]
  - SINUSITIS [None]
